FAERS Safety Report 11326730 (Version 1)
Quarter: 2015Q3

REPORT INFORMATION
  Report Type: Spontaneous
  Country: US (occurrence: None)
  Receive Date: 20150629
  Receipt Date: 20150629
  Transmission Date: 20151125
  Serious: No
  Sender: FDA-Public Use
  Company Number: A-US2014-107951

PATIENT
  Age: 69 Year
  Sex: Female

DRUGS (7)
  1. PANTOPRAZOLE [Concomitant]
     Active Substance: PANTOPRAZOLE SODIUM
  2. OPSUMIT [Suspect]
     Active Substance: MACITENTAN
     Indication: PULMONARY ARTERIAL HYPERTENSION
     Route: 048
     Dates: start: 20140917, end: 20141002
  3. AUGMENTIN (AMOXICILLIN SODIUM, CLAVULANATE POTASSIUM) [Concomitant]
  4. DOXAZOSIN [Concomitant]
     Active Substance: DOXAZOSIN\DOXAZOSIN MESYLATE
  5. LASIX [Concomitant]
     Active Substance: FUROSEMIDE
  6. CALCITRIOL. [Concomitant]
     Active Substance: CALCITRIOL
  7. ZYLOPRIM (ALLOPURINOL) [Concomitant]

REACTIONS (4)
  - Condition aggravated [None]
  - Nasal congestion [None]
  - Epistaxis [None]
  - Oedema peripheral [None]

NARRATIVE: CASE EVENT DATE: 20141002
